FAERS Safety Report 12569405 (Version 1)
Quarter: 2016Q3

REPORT INFORMATION
  Report Type: Spontaneous
  Country: US (occurrence: None)
  Receive Date: 20160718
  Receipt Date: 20160718
  Transmission Date: 20161109
  Serious: Yes (Life-Threatening)
  Sender: FDA-Public Use
  Company Number: None

PATIENT
  Age: 69 Year
  Sex: Male

DRUGS (1)
  1. RITUXIMAB [Suspect]
     Active Substance: RITUXIMAB
     Indication: MANTLE CELL LYMPHOMA
     Route: 042
     Dates: start: 20160627, end: 20160627

REACTIONS (6)
  - Dyspnoea [None]
  - Hypertension [None]
  - Screaming [None]
  - Infusion related reaction [None]
  - Chills [None]
  - Unevaluable event [None]

NARRATIVE: CASE EVENT DATE: 20160627
